FAERS Safety Report 13966462 (Version 2)
Quarter: 2017Q4

REPORT INFORMATION
  Report Type: Spontaneous
  Country: US (occurrence: US)
  Receive Date: 20170913
  Receipt Date: 20171004
  Transmission Date: 20180320
  Serious: Yes (Other)
  Sender: FDA-Public Use
  Company Number: US-BRISTOL-MYERS SQUIBB COMPANY-BMS-2017-080242

PATIENT
  Sex: Male
  Weight: 96.6 kg

DRUGS (1)
  1. YERVOY [Suspect]
     Active Substance: IPILIMUMAB
     Indication: MALIGNANT MELANOMA
     Dosage: 1050 MG, UNK
     Route: 042
     Dates: start: 20170615, end: 20170728

REACTIONS (2)
  - Central nervous system infection [Unknown]
  - Hypersensitivity [Unknown]
